FAERS Safety Report 21883827 (Version 1)
Quarter: 2023Q1

REPORT INFORMATION
  Report Type: Spontaneous
  Country: US (occurrence: None)
  Receive Date: 20230118
  Receipt Date: 20230118
  Transmission Date: 20230417
  Serious: Yes (Hospitalization)
  Sender: FDA-Public Use
  Company Number: None

PATIENT
  Sex: Male

DRUGS (12)
  1. STELARA [Suspect]
     Active Substance: USTEKINUMAB
     Indication: Crohn^s disease
     Route: 058
     Dates: start: 20220317
  2. ACETAMINOPHEN\HYDROCODONE [Concomitant]
     Active Substance: ACETAMINOPHEN\HYDROCODONE
  3. IBUPROFEN TAB [Concomitant]
  4. KENALOG-40 [Concomitant]
     Active Substance: TRIAMCINOLONE ACETONIDE
  5. MULTIVITAMIN TAB MEN 50+ [Concomitant]
  6. OMEPRAZOLE [Concomitant]
  7. ONDANSETRON TAB [Concomitant]
  8. OXYCODONE TAB [Concomitant]
  9. PREGABALIN [Concomitant]
     Active Substance: PREGABALIN
  10. TYLENOL PM [Concomitant]
  11. VITAMIN D3 [Concomitant]
     Active Substance: CHOLECALCIFEROL
  12. ZOLPIDEM [Concomitant]
     Active Substance: ZOLPIDEM TARTRATE

REACTIONS (1)
  - Bone operation [None]
